FAERS Safety Report 9214414 (Version 2)
Quarter: 2013Q3

REPORT INFORMATION
  Report Type: Spontaneous
  Country: US (occurrence: None)
  Receive Date: 20130403
  Receipt Date: 20130923
  Transmission Date: 20140515
  Serious: Yes (Death, Hospitalization)
  Sender: FDA-Public Use
  Company Number: 2013-007

PATIENT
  Age: 52 Year
  Sex: Male

DRUGS (6)
  1. PRIALT [Suspect]
     Indication: PAIN
     Route: 037
     Dates: end: 20130218
  2. PRIALT [Suspect]
     Indication: POST LAMINECTOMY SYNDROME
     Route: 037
     Dates: end: 20130218
  3. PRIALT [Suspect]
     Indication: SPINAL PAIN
     Route: 037
     Dates: end: 20130218
  4. DILAUDID [Suspect]
     Indication: PAIN
     Route: 037
     Dates: end: 20130311
  5. DILAUDID [Suspect]
     Indication: POST LAMINECTOMY SYNDROME
     Route: 037
     Dates: end: 20130311
  6. DILAUDID [Suspect]
     Indication: SPINAL PAIN
     Route: 037
     Dates: end: 20130311

REACTIONS (6)
  - Pain [None]
  - Therapeutic response decreased [None]
  - Medical device complication [None]
  - Cardiac arrest [None]
  - Coronary artery occlusion [None]
  - Drug ineffective [None]
